FAERS Safety Report 8032400-5 (Version None)
Quarter: 2012Q1

REPORT INFORMATION
  Report Type: 
  Country: None (occurrence: None)
  Receive Date: 20120109
  Receipt Date: 20120109
  Transmission Date: 20120608
  Serious: No
  Sender: FDA-Public Use
  Company Number: None

PATIENT
  Age: 68 Year
  Sex: Male
  Weight: 86.4 kg

DRUGS (1)
  1. LAMOTRIGINE [Suspect]
     Dosage: 25 MG BID PO
     Route: 048
     Dates: start: 20090710, end: 20090820

REACTIONS (1)
  - RASH PRURITIC [None]
